FAERS Safety Report 5314961-X (Version None)
Quarter: 2007Q2

REPORT INFORMATION
  Report Type: 
  Country: None (occurrence: None)
  Receive Date: 20070502
  Receipt Date: 20070423
  Transmission Date: 20071010
  Serious: Yes (Hospitalization)
  Sender: FDA-Public Use
  Company Number: PHHO2007AR07182

PATIENT
  Age: 60 Year
  Sex: Male
  Weight: 80 kg

DRUGS (1)
  1. CYCLOSPORINE [Suspect]
     Indication: LIVER TRANSPLANT
     Dosage: 900 MG DAILY
     Route: 048
     Dates: start: 20070412, end: 20070419

REACTIONS (3)
  - DELIRIUM [None]
  - HALLUCINATION, VISUAL [None]
  - MENTAL STATUS CHANGES [None]
